FAERS Safety Report 15457969 (Version 1)
Quarter: 2018Q4

REPORT INFORMATION
  Report Type: Report from Study
  Country: DE (occurrence: DE)
  Receive Date: 20181003
  Receipt Date: 20181003
  Transmission Date: 20190204
  Serious: Yes (Hospitalization, Other)
  Sender: FDA-Public Use
  Company Number: DE-ROCHE-1900077

PATIENT
  Age: 78 Year
  Sex: Female
  Weight: 52 kg

DRUGS (44)
  1. BEVACIZUMAB. [Suspect]
     Active Substance: BEVACIZUMAB
     Indication: OVARIAN CANCER
     Dosage: TREATMENT START DATE 01/MAR/2017
     Route: 042
  2. BEVACIZUMAB. [Suspect]
     Active Substance: BEVACIZUMAB
     Dosage: TREATMENT START DATE  08/AUG/2017
     Route: 042
  3. PANTOPRAZOL [Concomitant]
     Active Substance: PANTOPRAZOLE SODIUM
     Route: 048
     Dates: start: 20110101
  4. NADROPARIN [Concomitant]
     Active Substance: NADROPARIN
     Indication: ATRIAL FIBRILLATION
     Route: 058
     Dates: start: 20161028, end: 20161031
  5. FENISTIL (GERMANY) [Concomitant]
     Indication: HYPERSENSITIVITY
     Route: 048
     Dates: start: 20161028, end: 20161030
  6. TRACUTIL (GERMANY) [Concomitant]
     Indication: DEHYDRATION
     Dosage: 1 AMPULE,  LAST DOSE WAS ADMINITERED ON 15/NOV/2017 AND THERAPY END ON 28/NOV/2017
     Route: 042
     Dates: start: 20170817, end: 20170820
  7. CARBOPLATIN. [Concomitant]
     Active Substance: CARBOPLATIN
     Route: 042
     Dates: start: 20161121, end: 20161121
  8. PACLITAXEL. [Concomitant]
     Active Substance: PACLITAXEL
     Route: 042
     Dates: start: 20170301, end: 20170301
  9. CANDESARTAN. [Concomitant]
     Active Substance: CANDESARTAN
     Route: 048
     Dates: start: 20170827
  10. SALOFALK [Concomitant]
     Active Substance: MESALAMINE
     Route: 054
     Dates: start: 20170901, end: 20171012
  11. NACL 0.9% BOLUS [Concomitant]
     Route: 040
  12. LORMETAZEPAM [Concomitant]
     Active Substance: LORMETAZEPAM
     Route: 048
     Dates: start: 20171113, end: 20171129
  13. ZOFRAN [Concomitant]
     Active Substance: ONDANSETRON HYDROCHLORIDE
     Route: 042
     Dates: start: 20171115, end: 20171116
  14. TILIDIN [Concomitant]
     Active Substance: NALOXONE HYDROCHLORIDE\TILIDINE HYDROCHLORIDE
     Indication: PAIN
     Route: 048
     Dates: start: 20170201
  15. BRETARIS [Concomitant]
     Active Substance: ACLIDINIUM BROMIDE
     Route: 055
     Dates: start: 19860101
  16. JONOSTERIL [Concomitant]
     Indication: DEHYDRATION
     Route: 042
     Dates: start: 20170817, end: 20170820
  17. ARANESP [Concomitant]
     Active Substance: DARBEPOETIN ALFA
     Route: 058
     Dates: start: 20161031, end: 20161031
  18. CARBOPLATIN. [Concomitant]
     Active Substance: CARBOPLATIN
     Route: 042
     Dates: start: 20161031, end: 20161031
  19. CARBOPLATIN. [Concomitant]
     Active Substance: CARBOPLATIN
     Route: 042
     Dates: start: 20170104, end: 20170104
  20. CARBOPLATIN. [Concomitant]
     Active Substance: CARBOPLATIN
     Route: 042
     Dates: start: 20170301, end: 20170301
  21. BISOPROLOL [Concomitant]
     Active Substance: BISOPROLOL
     Indication: HYPERTENSION
     Route: 048
     Dates: start: 19960101
  22. OLIMEL [Concomitant]
     Active Substance: AMINO ACIDS\DEXTROSE\SOYBEAN OIL
     Indication: DEHYDRATION
     Dosage: LAST DOSE WAS ADMINITERED ON 15/NOV/2017 AND THERAPY END ON 28/NOV/2017
     Route: 042
     Dates: start: 20170817, end: 20170820
  23. METOHEXAL [Concomitant]
     Active Substance: METOPROLOL
     Route: 048
     Dates: start: 20180412
  24. XARELTO [Concomitant]
     Active Substance: RIVAROXABAN
     Indication: HYPERTENSION
     Route: 048
     Dates: start: 20161101
  25. FRAXIPARIN [Concomitant]
     Active Substance: NADROPARIN CALCIUM
     Indication: THROMBOSIS
     Dosage: LAST DOSE WAS ADMINITERED ON 15/NOV/2017 AND THERAPY END ON 28/NOV/2017 (TWICE DAILY)
     Route: 058
     Dates: start: 20170830, end: 20170903
  26. NEPRESOL (DIHYDRALAZINE SULFATE) [Concomitant]
     Active Substance: DIHYDRALAZINE SULFATE
     Route: 048
     Dates: start: 20180412
  27. NOVAMINSULFON [Concomitant]
     Active Substance: METAMIZOLE
     Indication: HEADACHE
     Route: 048
     Dates: start: 20161101, end: 20170201
  28. METOPROLOLSUCCINAT 1 A PHARMA [Concomitant]
     Active Substance: METOPROLOL SUCCINATE
     Indication: HYPERTENSION
     Route: 048
     Dates: start: 20161001
  29. OLIMEL [Concomitant]
     Active Substance: AMINO ACIDS\DEXTROSE\SOYBEAN OIL
     Route: 042
     Dates: start: 20170828, end: 20170905
  30. TRACUTIL (GERMANY) [Concomitant]
     Dosage: 1 AMPULLE
     Route: 042
     Dates: start: 20170828, end: 20170905
  31. AMLODIPIN [Concomitant]
     Active Substance: AMLODIPINE BESYLATE
     Route: 048
     Dates: start: 20180412
  32. PACLITAXEL. [Concomitant]
     Active Substance: PACLITAXEL
     Route: 042
     Dates: start: 20170301, end: 20170301
  33. PACLITAXEL. [Concomitant]
     Active Substance: PACLITAXEL
     Indication: OVARIAN CANCER
     Dosage: 187.38 - 193.38 MG
     Route: 042
     Dates: start: 20170207, end: 20170301
  34. FRAXIPARIN [Concomitant]
     Active Substance: NADROPARIN CALCIUM
     Indication: THROMBOSIS
     Route: 058
     Dates: start: 20161021, end: 20161029
  35. CARBOPLATIN. [Concomitant]
     Active Substance: CARBOPLATIN
     Route: 042
     Dates: start: 20170207, end: 20170207
  36. PACLITAXEL. [Concomitant]
     Active Substance: PACLITAXEL
     Indication: OVARIAN CANCER
     Route: 042
     Dates: start: 20170207, end: 20170207
  37. ATORVASTATIN [Concomitant]
     Active Substance: ATORVASTATIN
     Indication: HYPERCHOLESTEROLAEMIA
     Route: 048
     Dates: start: 20110101
  38. CARBOPLATIN. [Concomitant]
     Active Substance: CARBOPLATIN
     Indication: OVARIAN CANCER
     Dosage: DOSE BETWEEN 205 MG - 338.04 MG
     Route: 042
     Dates: start: 20161007, end: 20170301
  39. CIPROFLOXACIN. [Concomitant]
     Active Substance: CIPROFLOXACIN
     Indication: URINARY TRACT INFECTION
     Route: 042
     Dates: start: 20170327, end: 20170331
  40. DICLAC DUO [Concomitant]
     Active Substance: DICLOFENAC SODIUM
     Indication: PAIN
     Route: 048
     Dates: start: 20110101, end: 20170201
  41. PARACETAMOL [Concomitant]
     Active Substance: ACETAMINOPHEN
     Route: 048
     Dates: start: 20170831, end: 20170831
  42. TRAMAL [Concomitant]
     Active Substance: TRAMADOL
     Route: 042
     Dates: start: 20171114, end: 20171117
  43. FUROSEMID [Concomitant]
     Active Substance: FUROSEMIDE
     Route: 048
     Dates: start: 20180412
  44. CARBOPLATIN. [Concomitant]
     Active Substance: CARBOPLATIN
     Indication: OVARIAN CANCER
     Route: 042
     Dates: start: 20161007, end: 20161007

REACTIONS (11)
  - Mechanical ileus [Unknown]
  - Visual impairment [Recovered/Resolved]
  - Pyelonephritis [Recovered/Resolved]
  - Dehydration [Recovered/Resolved]
  - Small intestinal haemorrhage [Recovered/Resolved]
  - Fatigue [Recovering/Resolving]
  - Enterocolitis haemorrhagic [Recovered/Resolved]
  - Polyneuropathy [Recovered/Resolved]
  - Haematoma [Unknown]
  - Atrial flutter [Recovered/Resolved]
  - Prerenal failure [Recovered/Resolved]

NARRATIVE: CASE EVENT DATE: 20161015
